FAERS Safety Report 6729641-3 (Version None)
Quarter: 2010Q2

REPORT INFORMATION
  Report Type: 
  Country: None (occurrence: None)
  Receive Date: 20100512
  Receipt Date: 20100506
  Transmission Date: 20101027
  Serious: Yes (Death, Hospitalization)
  Sender: FDA-Public Use
  Company Number: TPA2010A02507

PATIENT
  Age: 68 Year
  Sex: Female
  Weight: 43.5453 kg

DRUGS (18)
  1. ULORIC [Suspect]
     Indication: GOUT
     Dosage: SEE IMAGE
     Route: 048
     Dates: start: 20100101, end: 20100422
  2. ULORIC [Suspect]
     Indication: GOUT
     Dosage: SEE IMAGE
     Route: 048
     Dates: start: 20091222
  3. LASIX [Concomitant]
  4. ISOSORBIDE MONONITRATE [Concomitant]
  5. PREMPRO [Concomitant]
  6. LEVOTHYROXINE SODIUM [Concomitant]
  7. COREG [Concomitant]
  8. DIGOXIN [Concomitant]
  9. SAMPLE CELEBREX (CELECOXIB) [Concomitant]
  10. CYTRA-2 (ALL OTHER THERAPEUTIC PRODUCTS) [Concomitant]
  11. SIMVASTATIN [Concomitant]
  12. SPIRONOLACTONE (SPIRONOLACETONE) [Concomitant]
  13. ALTACE [Concomitant]
  14. GLIPIZIDE [Concomitant]
  15. ASPIRIN [Concomitant]
  16. PREDNISONE TAB [Concomitant]
  17. FERROUS SULFATE (FERROUS SULAFTE) [Concomitant]
  18. MULTIVITAMIN/MINERAL SUPPLEMENT (VITAMINS NOS, MINERALS NOS) [Concomitant]

REACTIONS (7)
  - ASTHENIA [None]
  - BLOOD CREATININE INCREASED [None]
  - DEHYDRATION [None]
  - DIARRHOEA [None]
  - GLOMERULAR FILTRATION RATE DECREASED [None]
  - PRESYNCOPE [None]
  - PULMONARY EMBOLISM [None]
